FAERS Safety Report 23491350 (Version 1)
Quarter: 2024Q1

REPORT INFORMATION
  Report Type: Spontaneous
  Country: US (occurrence: None)
  Receive Date: 20240207
  Receipt Date: 20240207
  Transmission Date: 20240410
  Serious: No
  Sender: FDA-Public Use
  Company Number: US-ROCHE-3473621

PATIENT
  Age: 13 Year
  Sex: Male

DRUGS (2)
  1. NUTROPIN AQ [Suspect]
     Active Substance: SOMATROPIN
     Indication: Hypopituitarism
     Dosage: 2.2MG AND 2.4MG ALTERNATING EVERY OTHER DAY
     Route: 058
     Dates: start: 20230814
  2. NUTROPIN AQ [Suspect]
     Active Substance: SOMATROPIN

REACTIONS (2)
  - Circumstance or information capable of leading to medication error [Unknown]
  - No adverse event [Unknown]
